FAERS Safety Report 18269566 (Version 1)
Quarter: 2020Q3

REPORT INFORMATION
  Report Type: Spontaneous
  Country: GB (occurrence: GB)
  Receive Date: 20200915
  Receipt Date: 20200915
  Transmission Date: 20201103
  Serious: Yes (Other)
  Sender: FDA-Public Use
  Company Number: GB-PFIZER INC-2020350422

PATIENT
  Age: 36 Year
  Sex: Female
  Weight: 89 kg

DRUGS (14)
  1. DALTEPARIN SODIUM [Suspect]
     Active Substance: DALTEPARIN SODIUM
     Dosage: 18000 IU, 1X/DAY
     Route: 065
     Dates: start: 20200824
  2. METFORMIN [Suspect]
     Active Substance: METFORMIN HYDROCHLORIDE
     Indication: DIABETES MELLITUS
     Dosage: 500 MG, 1X/DAY
     Route: 065
     Dates: start: 20200824
  3. APREPITANT. [Suspect]
     Active Substance: APREPITANT
     Indication: SUPPORTIVE CARE
     Dosage: 125 MG, D1
     Dates: start: 20200824
  4. BACTERIOSTATIC SODIUM CHLORIDE [Suspect]
     Active Substance: SODIUM CHLORIDE
     Indication: MEDICATION DILUTION
     Dosage: UNK, IN CISPLATIN
     Route: 042
     Dates: start: 20200824, end: 20200824
  5. CISPLATIN. [Suspect]
     Active Substance: CISPLATIN
     Indication: NEOPLASM RECURRENCE
     Dosage: UNK
     Route: 065
  6. DOMPERIDONE [Suspect]
     Active Substance: DOMPERIDONE
     Indication: SUPPORTIVE CARE
     Dosage: 30 MG, 1X/DAY (PRN?AS NEEDED)
     Route: 065
     Dates: start: 20200824
  7. ETOPOSIDE. [Suspect]
     Active Substance: ETOPOSIDE
     Indication: GERM CELL NEOPLASM
     Dosage: UNK
  8. APREPITANT. [Suspect]
     Active Substance: APREPITANT
     Dosage: 80 MG, D2
     Route: 065
     Dates: start: 20200825
  9. BACTERIOSTATIC SODIUM CHLORIDE [Suspect]
     Active Substance: SODIUM CHLORIDE
     Dosage: 2 UNK, 1X/DAY, IN ETOPOSIDE
     Route: 042
     Dates: start: 20200824, end: 20200824
  10. DEXAMETHASONE SODIUM PHOSPHATE. [Suspect]
     Active Substance: DEXAMETHASONE SODIUM PHOSPHATE
     Indication: SUPPORTIVE CARE
     Dosage: 8 MG, DAILY (BD FOR 3 DAYS)
     Route: 065
     Dates: start: 20200824, end: 20200826
  11. ONDANSETRON [Suspect]
     Active Substance: ONDANSETRON
     Indication: SUPPORTIVE CARE
     Dosage: 16 MG, 1X/DAY (BD FOR 3 DAYS)
     Route: 065
     Dates: start: 20200824, end: 20200826
  12. ETOPOSIDE. [Suspect]
     Active Substance: ETOPOSIDE
     Indication: NEOPLASM RECURRENCE
     Dosage: 720 MG, 1X/DAY
     Route: 042
     Dates: start: 20200824, end: 20200824
  13. CISPLATIN. [Suspect]
     Active Substance: CISPLATIN
     Indication: GERM CELL NEOPLASM
     Dosage: IN SODIUM CHLORIDE 0.9%
     Dates: start: 20200824, end: 20200824
  14. APREPITANT. [Suspect]
     Active Substance: APREPITANT
     Dosage: 80 MG, D3
     Route: 065
     Dates: start: 20200826, end: 20200826

REACTIONS (1)
  - Anaphylactic reaction [Recovered/Resolved]

NARRATIVE: CASE EVENT DATE: 20200824
